FAERS Safety Report 19674971 (Version 1)
Quarter: 2021Q3

REPORT INFORMATION
  Report Type: Report from Study
  Country: AU (occurrence: AU)
  Receive Date: 20210809
  Receipt Date: 20210809
  Transmission Date: 20211014
  Serious: Yes (Death, Hospitalization)
  Sender: FDA-Public Use
  Company Number: AU-ROCHE-2882610

PATIENT
  Age: 69 Year
  Sex: Male

DRUGS (28)
  1. RITUXIMAB. [Suspect]
     Active Substance: RITUXIMAB
     Dosage: RETREATMENT/CROSSOVER ? DRUG (CYCLE 2 DAY 1)?SUBSEQUENT STUDY DRUG ADMINISTERED AT SAME DOSE ON 22/J
     Route: 041
     Dates: start: 20191224
  2. PREDNISOLONE. [Concomitant]
     Active Substance: PREDNISOLONE
     Dates: start: 20191029
  3. VENETOCLAX. [Suspect]
     Active Substance: VENETOCLAX
     Route: 048
     Dates: start: 20191118, end: 20210607
  4. RITUXIMAB. [Suspect]
     Active Substance: RITUXIMAB
     Dosage: CYCLE 1 DAY 2
     Route: 041
     Dates: start: 20150326
  5. ALLOPURINOL. [Concomitant]
     Active Substance: ALLOPURINOL
     Dates: start: 20191016
  6. VENETOCLAX. [Suspect]
     Active Substance: VENETOCLAX
     Route: 048
     Dates: start: 20191104, end: 20191110
  7. ASPIRIN. [Concomitant]
     Active Substance: ASPIRIN
     Dates: start: 20150618
  8. PREDNISOLONE. [Concomitant]
     Active Substance: PREDNISOLONE
     Dates: start: 20190919, end: 20191007
  9. BACTRIM [Concomitant]
     Active Substance: SULFAMETHOXAZOLE\TRIMETHOPRIM
  10. RITUXIMAB. [Suspect]
     Active Substance: RITUXIMAB
     Indication: CHRONIC LYMPHOCYTIC LEUKAEMIA
     Dosage: CYCLE 1 DAY 1
     Route: 041
     Dates: start: 20150325
  11. RITUXIMAB. [Suspect]
     Active Substance: RITUXIMAB
     Dosage: CYCLE 2 DAY 1?SUBSEQUENT STUDY DRUG ADMINISTERED AT SAME DOSE ON 20/MAY/2015 (C3D1), 17/JUN/2015(C4D
     Route: 041
     Dates: start: 20150421
  12. PANADOL [Concomitant]
     Active Substance: ACETAMINOPHEN
     Indication: HEADACHE
     Dates: start: 20150303
  13. ALLOPURINOL. [Concomitant]
     Active Substance: ALLOPURINOL
     Dates: start: 20150321, end: 20150324
  14. PREDNISOLONE. [Concomitant]
     Active Substance: PREDNISOLONE
     Dates: start: 20191008, end: 20191015
  15. FOLIC ACID. [Concomitant]
     Active Substance: FOLIC ACID
     Dates: start: 20190925
  16. CANESTEN [Concomitant]
     Active Substance: CLOTRIMAZOLE
     Dates: start: 2005
  17. ATORVASTATIN [Concomitant]
     Active Substance: ATORVASTATIN
     Dates: start: 20160401
  18. VENETOCLAX. [Suspect]
     Active Substance: VENETOCLAX
     Indication: CHRONIC LYMPHOCYTIC LEUKAEMIA
     Dosage: DATE OF MOST RECENT DOSE OF VENETOCLAX PRIOR TO AE ONSET 29/JUL/2021 (400 MG)
     Route: 048
     Dates: start: 20191021, end: 20191027
  19. ALLOPURINOL. [Concomitant]
     Active Substance: ALLOPURINOL
     Dates: start: 20150327, end: 20150407
  20. VENETOCLAX. [Suspect]
     Active Substance: VENETOCLAX
     Route: 048
     Dates: start: 20191111, end: 20191117
  21. HYDROZOLE [Concomitant]
     Active Substance: CLOTRIMAZOLE\HYDROCORTISONE
     Dates: start: 20151015
  22. PANTOPRAZOLE [Concomitant]
     Active Substance: PANTOPRAZOLE
     Dates: start: 20191019
  23. VENETOCLAX. [Suspect]
     Active Substance: VENETOCLAX
     Route: 048
     Dates: start: 20191028, end: 20191103
  24. VENETOCLAX. [Suspect]
     Active Substance: VENETOCLAX
     Route: 048
     Dates: start: 20210608
  25. RITUXIMAB. [Suspect]
     Active Substance: RITUXIMAB
     Dosage: RETREATMENT/CROSSOVER ? DRUG (CYCLE 1 DAY 1)
     Route: 041
     Dates: start: 20191126
  26. BENDAMUSTINE [Suspect]
     Active Substance: BENDAMUSTINE
     Indication: CHRONIC LYMPHOCYTIC LEUKAEMIA
     Dosage: CYCLE 1 DAY 1?SUBSEQUENT STUDY DRUG ADMINISTERED AT SAME DOSE ON 26/MAR/2015 (C1D2), 21/APR/2015 (C2
     Route: 042
     Dates: start: 20150325
  27. PREDNISOLONE. [Concomitant]
     Active Substance: PREDNISOLONE
     Dates: start: 20191016, end: 20191028
  28. VALACICLOVIR [Concomitant]
     Active Substance: VALACYCLOVIR HYDROCHLORIDE
     Dates: start: 20190925

REACTIONS (1)
  - Abdominal pain [Fatal]

NARRATIVE: CASE EVENT DATE: 20210729
